FAERS Safety Report 17540162 (Version 1)
Quarter: 2020Q1

REPORT INFORMATION
  Report Type: Spontaneous
  Country: CN (occurrence: CN)
  Receive Date: 20200313
  Receipt Date: 20200313
  Transmission Date: 20200409
  Serious: Yes (Life-Threatening)
  Sender: FDA-Public Use
  Company Number: NVSC2020CN072343

PATIENT
  Age: 85 Year
  Sex: Female
  Weight: 64 kg

DRUGS (5)
  1. SODIUM VALPROATE [Suspect]
     Active Substance: VALPROATE SODIUM
     Indication: PROPHYLAXIS
     Dosage: 0.80 G, BID (2 DF PER DAY)
     Route: 065
     Dates: start: 20200123, end: 20200208
  2. SODIUM CHLORIDE. [Concomitant]
     Active Substance: SODIUM CHLORIDE
     Indication: PRODUCT USED FOR UNKNOWN INDICATION
     Dosage: 100 ML, TID
     Route: 041
     Dates: start: 20200122, end: 20200212
  3. SODIUM CHLORIDE. [Concomitant]
     Active Substance: SODIUM CHLORIDE
     Dosage: 50 ML, BID
     Route: 065
     Dates: start: 20200123, end: 20200208
  4. PIPERACILLIN AND TAZOBACTAM [Suspect]
     Active Substance: PIPERACILLIN SODIUM\TAZOBACTAM SODIUM
     Indication: INFECTION
     Dosage: 4.5 G, TID (3 DF PER DAY)
     Route: 041
     Dates: start: 20200122, end: 20200212
  5. OXCARBAZEPINE. [Suspect]
     Active Substance: OXCARBAZEPINE
     Indication: PROPHYLAXIS
     Dosage: 0.30 G, QD (2 DF PER DAY)
     Route: 045
     Dates: start: 20200207, end: 20200213

REACTIONS (1)
  - Bone marrow failure [Recovering/Resolving]

NARRATIVE: CASE EVENT DATE: 20200212
